FAERS Safety Report 9708606 (Version 3)
Quarter: 2014Q1

REPORT INFORMATION
  Report Type: Spontaneous
  Country: US (occurrence: US)
  Receive Date: 20131125
  Receipt Date: 20140213
  Transmission Date: 20141002
  Serious: Yes (Hospitalization, Other)
  Sender: FDA-Public Use
  Company Number: US-PFIZER INC-2013336093

PATIENT
  Age: 71 Year
  Sex: Female
  Weight: 68.03 kg

DRUGS (24)
  1. LYRICA [Suspect]
     Indication: DIABETIC NEUROPATHY
     Dosage: 75 MG, 2X/DAY
     Route: 048
     Dates: start: 20111012
  2. LYRICA [Suspect]
     Indication: ARTHRALGIA
  3. ALPRAZOLAM [Concomitant]
     Dosage: 0.5 MG, 2X/DAY
  4. WELLBUTRIN XL [Concomitant]
     Dosage: 150 MG, UNK
  5. CALCIUM CARBONATE [Concomitant]
     Indication: VITAMIN SUPPLEMENTATION
     Dosage: UNK
  6. ENABLEX [Concomitant]
     Dosage: 15 MG, 1X/DAY
  7. DILTIAZEM [Concomitant]
     Dosage: 300 MG, 1X/DAY
  8. CRANBERRY [Concomitant]
     Dosage: UNK
  9. FENOFIBRATE [Concomitant]
     Dosage: 150 MG, 1X/DAY
  10. FERROUS SULPHATE [Concomitant]
     Dosage: 325 MG, 1X/DAY
  11. FOLIC ACID [Concomitant]
     Dosage: 1 MG, 3X/DAY
  12. GARLIC [Concomitant]
     Dosage: 1000 MG, 1X/DAY
  13. GLIMEPIRIDE [Concomitant]
     Dosage: 1 MG, 1X/DAY
  14. SYNTHROID [Concomitant]
     Dosage: 100 UG, 1X/DAY
  15. LISINOPRIL [Concomitant]
     Dosage: 20 MG, 1X/DAY
  16. LORATADINE [Concomitant]
     Dosage: 10 MG, UNK
  17. OMEGA 3 FATTY ACIDS [Concomitant]
     Dosage: 900 MG, 2X/DAY
  18. PRILOSEC [Concomitant]
     Dosage: 20 MG, 1X/DAY
  19. PRAVASTATIN [Concomitant]
     Dosage: 80 MG, 1X/DAY
  20. XARELTO [Concomitant]
     Dosage: 15 MG, 1X/DAY
  21. XARELTO [Concomitant]
     Dosage: 15 MG, UNK
  22. HALCION [Concomitant]
     Dosage: 0.25 MG, AS NEEDED
  23. DIAZEPAM [Concomitant]
     Dosage: 5 MG, UNK
  24. TRAMADOL [Concomitant]
     Dosage: 50 MG, UNK

REACTIONS (3)
  - Cardiac disorder [Unknown]
  - Dehydration [Unknown]
  - Bronchitis [Unknown]
